FAERS Safety Report 10347399 (Version 1)
Quarter: 2014Q3

REPORT INFORMATION
  Report Type: Spontaneous
  Country: US (occurrence: None)
  Receive Date: 20140728
  Receipt Date: 20140728
  Transmission Date: 20150326
  Serious: Yes (Other)
  Sender: FDA-Public Use
  Company Number: None

PATIENT
  Age: 46 Year
  Sex: Male
  Weight: 108.41 kg

DRUGS (7)
  1. RANITADINE [Concomitant]
  2. LIALDA [Concomitant]
     Active Substance: MESALAMINE
  3. CHANTIX [Suspect]
     Active Substance: VARENICLINE TARTRATE
     Indication: SMOKING CESSATION THERAPY
     Route: 048
     Dates: start: 20131011, end: 20131213
  4. SIMVASTATIN. [Concomitant]
     Active Substance: SIMVASTATIN
  5. KLONOPIN [Concomitant]
     Active Substance: CLONAZEPAM
  6. NIACIN. [Concomitant]
     Active Substance: NIACIN
  7. NORCO [Concomitant]
     Active Substance: ACETAMINOPHEN\HYDROCODONE BITARTRATE

REACTIONS (1)
  - Colitis ulcerative [None]

NARRATIVE: CASE EVENT DATE: 20140411
